FAERS Safety Report 16822983 (Version 1)
Quarter: 2019Q3

REPORT INFORMATION
  Report Type: Spontaneous
  Country: US (occurrence: US)
  Receive Date: 20190918
  Receipt Date: 20190918
  Transmission Date: 20191005
  Serious: No
  Sender: FDA-Public Use
  Company Number: US-SUNOVION-2019SUN003785

PATIENT
  Age: 60 Year
  Sex: Male

DRUGS (1)
  1. XOPENEX [Suspect]
     Active Substance: LEVALBUTEROL HYDROCHLORIDE
     Indication: ASTHMA
     Route: 055

REACTIONS (5)
  - Dyspnoea [Recovered/Resolved]
  - Headache [Unknown]
  - Chest pain [Unknown]
  - Off label use [Unknown]
  - Fatigue [Unknown]
